FAERS Safety Report 14564450 (Version 2)
Quarter: 2021Q2

REPORT INFORMATION
  Report Type: Report from Study
  Country: US (occurrence: US)
  Receive Date: 20180222
  Receipt Date: 20210421
  Transmission Date: 20210716
  Serious: No
  Sender: FDA-Public Use
  Company Number: US-TAKEDA-2018TUS003884

PATIENT
  Sex: Female

DRUGS (1)
  1. VEDOLIZUMAB [Suspect]
     Active Substance: VEDOLIZUMAB
     Indication: CROHN^S DISEASE
     Dosage: UNK
     Route: 042

REACTIONS (3)
  - Memory impairment [Unknown]
  - Feeling abnormal [Unknown]
  - Product dose omission issue [Unknown]
